FAERS Safety Report 8372978-5 (Version None)
Quarter: 2012Q2

REPORT INFORMATION
  Report Type: 
  Country: None (occurrence: None)
  Receive Date: 20120521
  Receipt Date: 20111031
  Transmission Date: 20120825
  Serious: No
  Sender: FDA-Public Use
  Company Number: US-ASTRAZENECA-2011SE72381

PATIENT
  Age: 76 Year
  Sex: Female

DRUGS (9)
  1. PREMARIN [Concomitant]
     Dosage: UNKNOWN
  2. ACECOL [Concomitant]
     Dosage: UNKNOWN
  3. LOSARTAN POTASSIUM [Concomitant]
     Dosage: UNKNOWN
  4. SYNTHROID [Concomitant]
     Dosage: UNKNOWN
  5. ASPIRIN [Concomitant]
     Dosage: UNKNOWN
  6. PRILOSEC OTC [Suspect]
     Route: 048
     Dates: end: 20111030
  7. NABUMETONE [Concomitant]
     Dosage: UNKNOWN
  8. AMITRIPTYLINE HCL [Concomitant]
     Dosage: UNKNOWN
  9. CALCIUM [Concomitant]
     Dosage: UNKNOWN

REACTIONS (2)
  - DRY EYE [None]
  - INCORRECT DRUG ADMINISTRATION DURATION [None]
